FAERS Safety Report 15383898 (Version 1)
Quarter: 2018Q3

REPORT INFORMATION
  Report Type: Spontaneous
  Country: RO (occurrence: RO)
  Receive Date: 20180914
  Receipt Date: 20180914
  Transmission Date: 20181010
  Serious: Yes (Disabling)
  Sender: FDA-Public Use
  Company Number: RO-ROCHE-2184501

PATIENT
  Age: 50 Year
  Sex: Male
  Weight: 70 kg

DRUGS (4)
  1. FLUDARABINA [Concomitant]
     Active Substance: FLUDARABINE PHOSPHATE
     Indication: B-CELL SMALL LYMPHOCYTIC LYMPHOMA
     Route: 042
     Dates: start: 201806
  2. CICLOFOSFAMIDA [Concomitant]
     Active Substance: CYCLOPHOSPHAMIDE
     Route: 065
  3. INSULIN HUMAN [Suspect]
     Active Substance: INSULIN HUMAN
     Indication: DIABETES MELLITUS
     Dosage: 10?12 UNITS X 3/DAY
     Route: 058
     Dates: start: 201804, end: 201806
  4. MABTHERA [Suspect]
     Active Substance: RITUXIMAB
     Indication: B-CELL SMALL LYMPHOCYTIC LYMPHOMA
     Dosage: 700 MG
     Route: 042
     Dates: start: 201804, end: 201807

REACTIONS (1)
  - Axonal neuropathy [Not Recovered/Not Resolved]

NARRATIVE: CASE EVENT DATE: 201805
